FAERS Safety Report 9121008 (Version 2)
Quarter: 2013Q3

REPORT INFORMATION
  Report Type: Spontaneous
  Country: JP (occurrence: JP)
  Receive Date: 20130226
  Receipt Date: 20130930
  Transmission Date: 20140515
  Serious: Yes (Life-Threatening, Other)
  Sender: FDA-Public Use
  Company Number: JP-009507513-1210JPN012242

PATIENT
  Age: 75 Year
  Sex: 0
  Weight: 78 kg

DRUGS (2)
  1. BRIDION INTRAVENOUS 200MG [Suspect]
     Indication: NEUROMUSCULAR BLOCKADE REVERSAL
     Dosage: 200 MG, ONCE
     Route: 042
     Dates: start: 20120423, end: 20120423
  2. ESLAX [Suspect]
     Indication: NEUROMUSCULAR BLOCKING THERAPY
     Dosage: 327 MG, DIVIDED DOSE FREQUENCY U
     Route: 042
     Dates: start: 20120423, end: 20120423

REACTIONS (2)
  - Respiratory arrest [Recovered/Resolved]
  - Recurrence of neuromuscular blockade [Recovered/Resolved]
